FAERS Safety Report 4754204-9 (Version None)
Quarter: 2005Q3

REPORT INFORMATION
  Report Type: 
  Country: None (occurrence: None)
  Receive Date: 20050826
  Receipt Date: 20050815
  Transmission Date: 20060218
  Serious: Yes (Life-Threatening, Other)
  Sender: FDA-Public Use
  Company Number: CHPA2005US02145

PATIENT
  Age: 46 Year
  Sex: Female
  Weight: 77.1 kg

DRUGS (4)
  1. HABITROL [Suspect]
     Dosage: 21 MG, QD, TRANSDERMAL
     Route: 062
     Dates: start: 20050803
  2. CONRAST MEDIA (NO INGREDIENTS/SUBSTANCES) [Suspect]
     Indication: DIAGNOSTIC PROCEDURE
     Dosage: ONCE/SINGLE, INTRAVENOUS
     Route: 042
     Dates: start: 20040804, end: 20050804
  3. XANAX [Concomitant]
  4. ASPIRIN [Concomitant]

REACTIONS (6)
  - INFUSION RELATED REACTION [None]
  - LOSS OF CONSCIOUSNESS [None]
  - PROCEDURAL COMPLICATION [None]
  - RESPIRATORY ARREST [None]
  - SKIN DISCOLOURATION [None]
  - URTICARIA [None]
